FAERS Safety Report 16740376 (Version 1)
Quarter: 2019Q3

REPORT INFORMATION
  Report Type: Spontaneous
  Country: US (occurrence: US)
  Receive Date: 20190826
  Receipt Date: 20190826
  Transmission Date: 20191005
  Serious: No
  Sender: FDA-Public Use
  Company Number: US-ASTELLAS-2018US046548

PATIENT
  Age: 72 Year
  Sex: Male

DRUGS (1)
  1. AMBISOME [Suspect]
     Active Substance: AMPHOTERICIN B
     Indication: ASPERGILLUS TEST POSITIVE
     Dosage: UNK UNK, UNKNOWN FREQ.
     Route: 034

REACTIONS (2)
  - Incorrect route of product administration [Unknown]
  - Off label use [Unknown]
